FAERS Safety Report 22046159 (Version 1)
Quarter: 2023Q1

REPORT INFORMATION
  Report Type: Spontaneous
  Country: US (occurrence: US)
  Receive Date: 20230228
  Receipt Date: 20230228
  Transmission Date: 20230417
  Serious: No
  Sender: FDA-Public Use
  Company Number: US-ALLERGAN-2216567US

PATIENT
  Age: 83 Year
  Sex: Female
  Weight: 63.956 kg

DRUGS (1)
  1. ESTRADIOL [Suspect]
     Active Substance: ESTRADIOL
     Indication: Urinary tract infection
     Dosage: 1 G, BID
     Route: 067

REACTIONS (5)
  - Vulvovaginal erythema [Recovering/Resolving]
  - Off label use [Unknown]
  - Expired product administered [Unknown]
  - Application site pain [Recovering/Resolving]
  - Vulvovaginal discomfort [Recovering/Resolving]

NARRATIVE: CASE EVENT DATE: 20220501
